FAERS Safety Report 6663579-5 (Version None)
Quarter: 2010Q2

REPORT INFORMATION
  Report Type: 
  Country: None (occurrence: None)
  Receive Date: 20100401
  Receipt Date: 20100322
  Transmission Date: 20101027
  Serious: Yes (Hospitalization)
  Sender: FDA-Public Use
  Company Number: FR-ROCHE-543094

PATIENT
  Age: 43 Year
  Sex: Female

DRUGS (2)
  1. HERCEPTIN [Suspect]
     Indication: BREAST CANCER
     Dosage: LOADING DOSE
     Route: 042
     Dates: start: 20050601
  2. HERCEPTIN [Suspect]
     Route: 042
     Dates: end: 20060901

REACTIONS (2)
  - ABORTION INDUCED [None]
  - ECTOPIC PREGNANCY [None]
